FAERS Safety Report 21848645 (Version 1)
Quarter: 2023Q1

REPORT INFORMATION
  Report Type: Report from Study
  Country: US (occurrence: US)
  Receive Date: 20230111
  Receipt Date: 20230111
  Transmission Date: 20230418
  Serious: No
  Sender: FDA-Public Use
  Company Number: US-ABBVIE-4205368

PATIENT
  Sex: Female

DRUGS (1)
  1. HUMIRA [Suspect]
     Active Substance: ADALIMUMAB
     Indication: Rheumatoid arthritis
     Route: 058
     Dates: start: 20210216

REACTIONS (6)
  - Illness [Unknown]
  - Pharyngitis streptococcal [Unknown]
  - Unevaluable event [Unknown]
  - COVID-19 [Unknown]
  - Infection [Unknown]
  - Oropharyngeal pain [Unknown]
